FAERS Safety Report 17818051 (Version 1)
Quarter: 2020Q2

REPORT INFORMATION
  Report Type: Report from Study
  Country: US (occurrence: US)
  Receive Date: 20200522
  Receipt Date: 20200522
  Transmission Date: 20200714
  Serious: Yes (Hospitalization, Other)
  Sender: FDA-Public Use
  Company Number: US-BAUSCH-BL-2020-014914

PATIENT
  Age: 63 Year
  Sex: Female

DRUGS (2)
  1. XIFAXAN [Suspect]
     Active Substance: RIFAXIMIN
     Indication: HEPATIC ENCEPHALOPATHY
     Route: 048
     Dates: start: 2018, end: 202005
  2. XIFAXAN [Suspect]
     Active Substance: RIFAXIMIN
     Dosage: SELF-REDUCED THE DOSE SOMETIME IN THE PAST WEEK
     Route: 048
     Dates: start: 202005

REACTIONS (8)
  - Lethargy [Not Recovered/Not Resolved]
  - Renal impairment [Unknown]
  - Movement disorder [Not Recovered/Not Resolved]
  - Intentional product use issue [Unknown]
  - Sepsis [Unknown]
  - Liver disorder [Unknown]
  - Hypersomnia [Not Recovered/Not Resolved]
  - Decreased appetite [Not Recovered/Not Resolved]

NARRATIVE: CASE EVENT DATE: 201903
